FAERS Safety Report 8113355-1 (Version None)
Quarter: 2012Q1

REPORT INFORMATION
  Report Type: 
  Country: None (occurrence: None)
  Receive Date: 20120203
  Receipt Date: 20120201
  Transmission Date: 20120608
  Serious: Yes (Death)
  Sender: FDA-Public Use
  Company Number: PHHY2012CA005117

PATIENT
  Sex: Male

DRUGS (4)
  1. ANTIBIOTICS [Concomitant]
  2. MORPHINE [Concomitant]
     Indication: ANALGESIC THERAPY
  3. CLOZARIL [Suspect]
     Route: 048
     Dates: start: 20091112
  4. CODEINE SULFATE [Concomitant]
     Indication: ANALGESIC THERAPY

REACTIONS (1)
  - DEATH [None]
